FAERS Safety Report 5742208-9 (Version None)
Quarter: 2008Q2

REPORT INFORMATION
  Report Type: 
  Country: None (occurrence: None)
  Receive Date: 20080519
  Receipt Date: 20080515
  Transmission Date: 20081010
  Serious: Yes (Life-Threatening, Hospitalization)
  Sender: FDA-Public Use
  Company Number: PHBS2008HU04566

PATIENT
  Age: 26 Year
  Sex: Female

DRUGS (3)
  1. METHOTREXATE [Concomitant]
     Dosage: 50 MG/DAY
     Route: 030
  2. METHOTREXATE [Concomitant]
     Dosage: 100 MG/DAY
     Route: 030
  3. BROMOCRIPTINE MESYLATE [Suspect]
     Dosage: 1.25 MG/DAY

REACTIONS (17)
  - ABDOMINAL PAIN LOWER [None]
  - ABDOMINAL TENDERNESS [None]
  - ABORTION OF ECTOPIC PREGNANCY [None]
  - ADHESIOLYSIS [None]
  - BLOOD HUMAN CHORIONIC GONADOTROPIN DECREASED [None]
  - DRUG EXPOSURE DURING PREGNANCY [None]
  - ECTOPIC PREGNANCY [None]
  - FLATULENCE [None]
  - FOETAL HEART RATE ABNORMAL [None]
  - HAEMATOCRIT DECREASED [None]
  - HAEMOGLOBIN DECREASED [None]
  - LAPAROTOMY [None]
  - MATERNAL DRUGS AFFECTING FOETUS [None]
  - PERITONEAL HAEMORRHAGE [None]
  - SALPINGECTOMY [None]
  - ULTRASOUND ANTENATAL SCREEN ABNORMAL [None]
  - ULTRASOUND SCAN ABNORMAL [None]
